FAERS Safety Report 19672830 (Version 1)
Quarter: 2021Q3

REPORT INFORMATION
  Report Type: Spontaneous
  Country: US (occurrence: US)
  Receive Date: 20210809
  Receipt Date: 20210809
  Transmission Date: 20211014
  Serious: No
  Sender: FDA-Public Use
  Company Number: NVSC2021US179384

PATIENT
  Sex: Female

DRUGS (1)
  1. VOLTAREN [Suspect]
     Active Substance: DICLOFENAC SODIUM
     Indication: EPICONDYLITIS
     Dosage: UNK
     Route: 065
     Dates: start: 202107

REACTIONS (4)
  - Rash erythematous [Unknown]
  - Swelling [Unknown]
  - Blister [Unknown]
  - Product use in unapproved indication [Unknown]
